FAERS Safety Report 17484930 (Version 1)
Quarter: 2020Q1

REPORT INFORMATION
  Report Type: Report from Study
  Country: US (occurrence: US)
  Receive Date: 20200302
  Receipt Date: 20200302
  Transmission Date: 20200409
  Serious: Yes (Death, Other)
  Sender: FDA-Public Use
  Company Number: US-JNJFOC-20200231803

PATIENT

DRUGS (2)
  1. HEROIN [Suspect]
     Active Substance: DIAMORPHINE
     Indication: DRUG ABUSE
     Route: 065
  2. DURAGESIC [Suspect]
     Active Substance: FENTANYL
     Indication: PRODUCT USED FOR UNKNOWN INDICATION
     Route: 062

REACTIONS (5)
  - Overdose [Fatal]
  - Loss of consciousness [Unknown]
  - Intentional product misuse [Unknown]
  - Drug abuse [Unknown]
  - Accidental overdose [Unknown]
